FAERS Safety Report 7731105-5 (Version None)
Quarter: 2011Q3

REPORT INFORMATION
  Report Type: 
  Country: None (occurrence: None)
  Receive Date: 20110906
  Receipt Date: 20110906
  Transmission Date: 20111222
  Serious: No
  Sender: FDA-Public Use
  Company Number: None

PATIENT
  Age: 53 Year
  Sex: Female
  Weight: 70.306 kg

DRUGS (1)
  1. ALLEGRA ALLERGY [Suspect]
     Indication: MULTIPLE ALLERGIES
     Dosage: ONE TABLET
     Route: 048
     Dates: start: 20110830, end: 20110831

REACTIONS (3)
  - BLOOD URINE PRESENT [None]
  - MICTURITION URGENCY [None]
  - CYSTITIS [None]
